FAERS Safety Report 6287790-0 (Version None)
Quarter: 2009Q3

REPORT INFORMATION
  Report Type: 
  Country: None (occurrence: None)
  Receive Date: 20090729
  Receipt Date: 20090720
  Transmission Date: 20100115
  Serious: Yes (Hospitalization)
  Sender: FDA-Public Use
  Company Number: US-BIOGENIDEC-2009BI001918

PATIENT
  Age: 42 Year
  Sex: Male
  Weight: 90 kg

DRUGS (1)
  1. TYSABRI [Suspect]
     Indication: MULTIPLE SCLEROSIS
     Route: 042
     Dates: start: 20071101

REACTIONS (6)
  - ABASIA [None]
  - FATIGUE [None]
  - HEMIPARESIS [None]
  - PLATELET COUNT DECREASED [None]
  - SINUSITIS [None]
  - UPPER RESPIRATORY TRACT INFECTION [None]
